FAERS Safety Report 8879471 (Version 1)
Quarter: 2012Q4

REPORT INFORMATION
  Report Type: 
  Country: US (occurrence: US)
  Receive Date: 20121031
  Receipt Date: 20121031
  Transmission Date: 20130627
  Serious: Yes (Hospitalization)
  Sender: FDA-Public Use
  Company Number: US-ASTRAZENECA-2010SE51842

PATIENT
  Age: 57 Year
  Sex: Female
  Weight: 72.6 kg

DRUGS (7)
  1. SYMBICORT PMDI [Suspect]
     Indication: ASTHMA
     Dosage: 160 MCG BID
     Route: 055
     Dates: start: 2008
  2. SYMBICORT PMDI [Suspect]
     Indication: ASTHMA
     Dosage: 160/4.5 MCG, UNKNOWN
     Route: 055
  3. PREVENTIL [Concomitant]
     Indication: ASTHMA
  4. AVELOX [Concomitant]
     Indication: PNEUMONIA
  5. MUCINEX [Concomitant]
     Indication: UPPER RESPIRATORY TRACT CONGESTION
  6. ALBUTEROL NEBS [Concomitant]
     Dosage: as needed
  7. EYE DROPS [Concomitant]

REACTIONS (5)
  - Respiratory disorder [Recovering/Resolving]
  - Pneumonia [Recovering/Resolving]
  - Osteoporosis [Unknown]
  - Nasopharyngitis [Unknown]
  - Headache [Unknown]
